FAERS Safety Report 4367374-1 (Version None)
Quarter: 2004Q2

REPORT INFORMATION
  Report Type: 
  Country: None (occurrence: None)
  Receive Date: 20040601
  Receipt Date: 20040521
  Transmission Date: 20050107
  Serious: Yes (Other)
  Sender: FDA-Public Use
  Company Number: 200413965US

PATIENT
  Sex: 0

DRUGS (3)
  1. ALLEGRA [Suspect]
     Dosage: DOSE: NOT PROVIDED
     Dates: start: 20040517
  2. TEGRETOL [Concomitant]
     Dosage: DOSE: NOT PROVIDED
  3. KEPPRA [Concomitant]
     Dosage: DOSE: NOT PROVIDED

REACTIONS (1)
  - CONVULSION [None]
